FAERS Safety Report 5976509-6 (Version None)
Quarter: 2008Q4

REPORT INFORMATION
  Report Type: 
  Country: None (occurrence: None)
  Receive Date: 20081124
  Receipt Date: 20081113
  Transmission Date: 20090506
  Serious: Yes (Hospitalization, Other)
  Sender: FDA-Public Use
  Company Number: 54236

PATIENT
  Age: 63 Year
  Sex: Male

DRUGS (1)
  1. CISPLATIN [Suspect]
     Indication: SQUAMOUS CELL CARCINOMA
     Dosage: 158MG IV
     Route: 042
     Dates: start: 20081006

REACTIONS (5)
  - BLOOD SODIUM DECREASED [None]
  - FEBRILE NEUTROPENIA [None]
  - HYPOKALAEMIA [None]
  - THROMBOCYTOPENIA [None]
  - VENOUS THROMBOSIS LIMB [None]
